FAERS Safety Report 6723624-5 (Version None)
Quarter: 2010Q2

REPORT INFORMATION
  Report Type: 
  Country: None (occurrence: None)
  Receive Date: 20100513
  Receipt Date: 20100509
  Transmission Date: 20101027
  Serious: Yes (Death)
  Sender: FDA-Public Use
  Company Number: PHHY2010US23545

PATIENT
  Sex: Female
  Weight: 50 kg

DRUGS (1)
  1. EXJADE [Suspect]
     Indication: IRON OVERLOAD
     Dosage: 750 MG DAILY
     Route: 048
     Dates: start: 20100316

REACTIONS (2)
  - SYSTEMIC MYCOSIS [None]
  - THROMBOTIC STROKE [None]
